FAERS Safety Report 16992641 (Version 1)
Quarter: 2019Q4

REPORT INFORMATION
  Report Type: Spontaneous
  Country: US (occurrence: US)
  Receive Date: 20191105
  Receipt Date: 20191105
  Transmission Date: 20200122
  Serious: No
  Sender: FDA-Public Use
  Company Number: US-LUPIN PHARMACEUTICALS INC.-2019-00137

PATIENT
  Sex: Female
  Weight: 91.16 kg

DRUGS (2)
  1. LIDOCAINE. [Concomitant]
     Active Substance: LIDOCAINE
     Indication: PRODUCT USED FOR UNKNOWN INDICATION
     Dosage: 0.9 ML, UNK
     Route: 030
     Dates: start: 20190107, end: 20190107
  2. CEFTRIAXONE FOR INJECTION USP, 250 MG [Suspect]
     Active Substance: CEFTRIAXONE
     Indication: PRODUCT USED FOR UNKNOWN INDICATION
     Dosage: 250 MG, UNK (ONCE)
     Route: 030
     Dates: start: 20190107, end: 20190107

REACTIONS (2)
  - Recalled product administered [Unknown]
  - No adverse event [Unknown]
